FAERS Safety Report 5975059-0 (Version None)
Quarter: 2008Q4

REPORT INFORMATION
  Report Type: 
  Country: None (occurrence: None)
  Receive Date: 20081128
  Receipt Date: 20081113
  Transmission Date: 20090506
  Serious: No
  Sender: FDA-Public Use
  Company Number: US025036

PATIENT
  Sex: Female

DRUGS (3)
  1. FENTORA [Suspect]
     Indication: COMPLEX REGIONAL PAIN SYNDROME
     Dosage: 200 UG FOUR TIMES DAILY AS NEEDED BUCCAL
     Route: 002
     Dates: start: 20070101
  2. ACTIQ [Suspect]
     Indication: COMPLEX REGIONAL PAIN SYNDROME
     Dosage: 200 UG 3 TIMES DAILY AS NEEDED BUCCAL
     Route: 002
     Dates: start: 20050101
  3. DURAGESIC-100 [Concomitant]

REACTIONS (1)
  - DRUG PRESCRIBING ERROR [None]
